FAERS Safety Report 12483760 (Version 1)
Quarter: 2016Q2

REPORT INFORMATION
  Report Type: Spontaneous
  Country: US (occurrence: None)
  Receive Date: 20160620
  Receipt Date: 20160620
  Transmission Date: 20160815
  Serious: No
  Sender: FDA-Public Use
  Company Number: None

PATIENT
  Age: 61 Year
  Sex: Male
  Weight: 85.7 kg

DRUGS (1)
  1. NIACIN (SLO-NIACIN) [Suspect]
     Active Substance: DIETARY SUPPLEMENT
     Route: 048
     Dates: start: 20140224, end: 20140224

REACTIONS (1)
  - Chest pain [None]

NARRATIVE: CASE EVENT DATE: 20140403
